FAERS Safety Report 16910454 (Version 1)
Quarter: 2019Q4

REPORT INFORMATION
  Report Type: Spontaneous
  Country: US (occurrence: US)
  Receive Date: 20191011
  Receipt Date: 20191011
  Transmission Date: 20200122
  Serious: No
  Sender: FDA-Public Use
  Company Number: US-GILEAD-2019-0432830

PATIENT
  Age: 44 Year

DRUGS (2)
  1. VEMLIDY [Suspect]
     Active Substance: TENOFOVIR ALAFENAMIDE FUMARATE
     Indication: HEPATITIS B
     Route: 065
  2. ENTECAVIR. [Concomitant]
     Active Substance: ENTECAVIR

REACTIONS (2)
  - Skin lesion [Unknown]
  - Lichenoid keratosis [Unknown]
